FAERS Safety Report 10215911 (Version 1)
Quarter: 2014Q2

REPORT INFORMATION
  Report Type: Spontaneous
  Country: IS (occurrence: None)
  Receive Date: 20140602
  Receipt Date: 20140602
  Transmission Date: 20141212
  Serious: Yes (Hospitalization)
  Sender: FDA-Public Use
  Company Number: NGX_02388_2014

PATIENT
  Sex: Male

DRUGS (1)
  1. QUTENZA [Suspect]
     Indication: NEUROPATHY PERIPHERAL
     Dosage: 2 DF, PATCHES
     Route: 061
     Dates: start: 20140520, end: 20140520

REACTIONS (4)
  - Erythema [None]
  - Drug intolerance [None]
  - Application site pain [None]
  - Heart rate increased [None]
